FAERS Safety Report 14216621 (Version 1)
Quarter: 2017Q4

REPORT INFORMATION
  Report Type: Report from Study
  Country: IL (occurrence: IL)
  Receive Date: 20171122
  Receipt Date: 20171122
  Transmission Date: 20180321
  Serious: Yes (Hospitalization, Other)
  Sender: FDA-Public Use
  Company Number: IL-ACTELION-A-US2017-162564

PATIENT
  Age: 69 Year
  Sex: Female
  Weight: 63 kg

DRUGS (9)
  1. FUSID [Concomitant]
     Active Substance: FUROSEMIDE
  2. VENTAVIS [Suspect]
     Active Substance: ILOPROST
     Indication: MULTIPLE SCLEROSIS
  3. OMEPRADEX [Concomitant]
     Active Substance: OMEPRAZOLE
  4. SILDENAFIL. [Concomitant]
     Active Substance: SILDENAFIL
  5. VENTAVIS [Suspect]
     Active Substance: ILOPROST
     Indication: PULMONARY HYPERTENSION
     Dosage: UNK
     Route: 055
     Dates: start: 20150713
  6. COUMADIN [Concomitant]
     Active Substance: WARFARIN SODIUM
     Dosage: UNK
  7. VOLIBRIS [Concomitant]
     Active Substance: AMBRISENTAN
  8. VITAMIN D [Concomitant]
     Active Substance: CHOLECALCIFEROL
  9. SIMVAXON [Concomitant]

REACTIONS (11)
  - Dyspnoea [Unknown]
  - Telangiectasia [Unknown]
  - Hyponatraemia [Unknown]
  - Hypoxia [Unknown]
  - Cardiac failure [Not Recovered/Not Resolved]
  - Diastolic dysfunction [Unknown]
  - Pulmonary hypertension [Unknown]
  - Palpitations [Recovered/Resolved]
  - Tricuspid valve incompetence [Unknown]
  - Mitral valve incompetence [Unknown]
  - Oedema peripheral [Unknown]

NARRATIVE: CASE EVENT DATE: 20171101
